FAERS Safety Report 14535777 (Version 5)
Quarter: 2019Q1

REPORT INFORMATION
  Report Type: Report from Study
  Country: US (occurrence: US)
  Receive Date: 20180215
  Receipt Date: 20190312
  Transmission Date: 20190417
  Serious: Yes (Other)
  Sender: FDA-Public Use
  Company Number: US-BAYER-2017-186129

PATIENT
  Age: 60 Year
  Sex: Female
  Weight: 104.31 kg

DRUGS (34)
  1. NEXAVAR [Suspect]
     Active Substance: SORAFENIB
     Indication: HEPATOCELLULAR CARCINOMA
     Dosage: UNK UNK, TID
     Route: 048
  2. FOLIC ACID. [Concomitant]
     Active Substance: FOLIC ACID
  3. VITAMIN D [Concomitant]
     Active Substance: CHOLECALCIFEROL
  4. TRANSDERM SCOP [Concomitant]
     Active Substance: SCOPOLAMINE
     Dosage: UNK
  5. NEXAVAR [Suspect]
     Active Substance: SORAFENIB
     Indication: HEPATOCELLULAR CARCINOMA
     Dosage: 200 MG, TID
     Route: 048
  6. RAMIPRIL. [Concomitant]
     Active Substance: RAMIPRIL
  7. METRONIDAZOLE. [Concomitant]
     Active Substance: METRONIDAZOLE
     Dosage: UNK
  8. NEXAVAR [Suspect]
     Active Substance: SORAFENIB
     Indication: HEPATOCELLULAR CARCINOMA
     Dosage: 200 MG, TID
     Route: 048
     Dates: start: 20170922, end: 201712
  9. NEXAVAR [Suspect]
     Active Substance: SORAFENIB
     Indication: HEPATOCELLULAR CARCINOMA
     Dosage: 200 MG, TID
     Route: 048
  10. IBUPROFEN. [Concomitant]
     Active Substance: IBUPROFEN
     Dosage: 200 MG
  11. METFORMIN [Concomitant]
     Active Substance: METFORMIN HYDROCHLORIDE
  12. PRILOSEC [Concomitant]
     Active Substance: OMEPRAZOLE MAGNESIUM
  13. VITAMIN D3 [Concomitant]
     Active Substance: CHOLECALCIFEROL
  14. CLINDAMYCIN HYDROCHLORIDE. [Concomitant]
     Active Substance: CLINDAMYCIN HYDROCHLORIDE
     Dosage: DAILY DOSE 150 MG
  15. IBUPROFEN. [Concomitant]
     Active Substance: IBUPROFEN
  16. TYLENOL [Concomitant]
     Active Substance: ACETAMINOPHEN
  17. IBUPROFEN. [Concomitant]
     Active Substance: IBUPROFEN
  18. SILYBUM MARIANUM [Concomitant]
     Active Substance: DIETARY SUPPLEMENT\HERBALS\MILK THISTLE
  19. SILYBUM MARIANUM [Concomitant]
     Active Substance: DIETARY SUPPLEMENT\HERBALS\MILK THISTLE
     Dosage: 150 MG
  20. PREVNAR [Concomitant]
     Active Substance: PNEUMOCOCCAL 7-VALENT CONJUGATE VACCINE (DIPHTHERIA CRM197 PROTEIN)
     Dosage: UNK
  21. FINACEA [Concomitant]
     Active Substance: AZELAIC ACID
     Dosage: UNK
  22. LYRICA [Concomitant]
     Active Substance: PREGABALIN
  23. ALTACE [Concomitant]
     Active Substance: RAMIPRIL
  24. MULTIVITAMINS [VITAMINS NOS] [Concomitant]
     Active Substance: VITAMINS
  25. METFORMIN HCL [Concomitant]
     Active Substance: METFORMIN HYDROCHLORIDE
  26. SHINGRIX [Concomitant]
     Active Substance: RECOMBINANT VARICELLA ZOSTER VIRUS (VZV) GLYCOPROTEIN E
     Dosage: UNK
  27. TRAMADOL HCL CF [Concomitant]
     Dosage: DAILY DOSE 50 MG
  28. SILYBUM MARIANUM [Concomitant]
     Active Substance: DIETARY SUPPLEMENT\HERBALS\MILK THISTLE
  29. NEXAVAR [Suspect]
     Active Substance: SORAFENIB
     Indication: HEPATOCELLULAR CARCINOMA
     Dosage: 200 MG, TID
     Route: 048
  30. VITAMIN K [VITAMIN K NOS] [Concomitant]
  31. PHYTONADIONE. [Concomitant]
     Active Substance: PHYTONADIONE
  32. OSELTAMIVIR PHOSPHATE. [Concomitant]
     Active Substance: OSELTAMIVIR PHOSPHATE
     Dosage: DAILY DOSE 75 MG
  33. LIPITOR [Concomitant]
     Active Substance: ATORVASTATIN CALCIUM
  34. MULTIVITAMINS [VITAMINS NOS] [Concomitant]
     Active Substance: VITAMINS

REACTIONS (32)
  - Hidradenitis [Unknown]
  - Dysgeusia [Unknown]
  - Pyrexia [Unknown]
  - Diarrhoea [Unknown]
  - Alopecia [Recovering/Resolving]
  - Abdominal distension [Unknown]
  - Pain in extremity [Unknown]
  - Constipation [Unknown]
  - Nasopharyngitis [Unknown]
  - Oropharyngeal pain [Unknown]
  - Liver transplant [None]
  - Subcutaneous abscess [None]
  - Skin exfoliation [Unknown]
  - Sensitive skin [Unknown]
  - Off label use [None]
  - Skin neoplasm excision [Unknown]
  - Hernia [Unknown]
  - Rash macular [Unknown]
  - Alopecia [Not Recovered/Not Resolved]
  - Abdominal pain upper [Unknown]
  - Palmar-plantar erythrodysaesthesia syndrome [Unknown]
  - Blood pressure increased [Unknown]
  - Product dose omission [None]
  - Wound complication [None]
  - Cough [Unknown]
  - Nipple disorder [Unknown]
  - Blood pressure diastolic increased [Unknown]
  - Headache [Unknown]
  - Sinus operation [Unknown]
  - Neuropathy peripheral [Unknown]
  - Intestinal obstruction [Unknown]
  - Hypertension [Recovering/Resolving]

NARRATIVE: CASE EVENT DATE: 20171003
